FAERS Safety Report 6640401-4 (Version None)
Quarter: 2010Q1

REPORT INFORMATION
  Report Type: 
  Country: None (occurrence: None)
  Receive Date: 20100303
  Receipt Date: 20090511
  Transmission Date: 20100710
  Serious: Yes (Other)
  Sender: FDA-Public Use
  Company Number: 633168

PATIENT
  Age: 54 Year
  Sex: Female
  Weight: 115.7 kg

DRUGS (1)
  1. BONIVA [Suspect]
     Indication: OSTEOPOROSIS
     Dosage: 1 PER 3 MONTH INTRAVENOUS
     Route: 042

REACTIONS (3)
  - CHEST DISCOMFORT [None]
  - FLUSHING [None]
  - OXYGEN SATURATION ABNORMAL [None]
